FAERS Safety Report 4964290-9 (Version None)
Quarter: 2006Q1

REPORT INFORMATION
  Report Type: 
  Country: None (occurrence: None)
  Receive Date: 20060331
  Receipt Date: 20060320
  Transmission Date: 20060701
  Serious: Yes (Other)
  Sender: FDA-Public Use
  Company Number: 2006039008

PATIENT
  Age: 79 Year
  Sex: Male
  Weight: 106.5953 kg

DRUGS (2)
  1. SUDAFED PE SEVERE COLD CAPLET (DIPHENHYDRAMINE, PHENYLEPHRINE, ACETAMI [Suspect]
     Indication: NASOPHARYNGITIS
     Dosage: 2 CAPLETS ONCE, ORAL
     Route: 048
     Dates: start: 20060316, end: 20060316
  2. ATENOLOL [Concomitant]

REACTIONS (4)
  - CONTUSION [None]
  - DIZZINESS [None]
  - FALL [None]
  - LOSS OF CONSCIOUSNESS [None]
